FAERS Safety Report 13934564 (Version 1)
Quarter: 2017Q3

REPORT INFORMATION
  Report Type: Spontaneous
  Country: US (occurrence: US)
  Receive Date: 20170905
  Receipt Date: 20170905
  Transmission Date: 20171127
  Serious: No
  Sender: FDA-Public Use
  Company Number: US-TEVA-771251ACC

PATIENT
  Sex: Female

DRUGS (1)
  1. APRI 28 [Suspect]
     Active Substance: DESOGESTREL\ETHINYL ESTRADIOL
     Indication: ENDOMETRIOSIS
     Dosage: DOSE STRENGTH: 0.15
     Route: 065
     Dates: start: 201703

REACTIONS (2)
  - Product use in unapproved indication [Unknown]
  - Erythema [Unknown]

NARRATIVE: CASE EVENT DATE: 20170517
